FAERS Safety Report 22033345 (Version 2)
Quarter: 2023Q1

REPORT INFORMATION
  Report Type: Spontaneous
  Country: US (occurrence: US)
  Receive Date: 20230224
  Receipt Date: 20230307
  Transmission Date: 20230418
  Serious: Yes (Hospitalization)
  Sender: FDA-Public Use
  Company Number: US-Fresenius Medical Care Renal Therapies Group-FMC-2302-000200

PATIENT
  Age: 80 Year
  Sex: Male
  Weight: 136 kg

DRUGS (1)
  1. DELFLEX WITH DEXTROSE 1.5% LOW MAGNESIUM LOW CALCIUM [Suspect]
     Active Substance: CALCIUM CHLORIDE\DEXTROSE\MAGNESIUM CHLORIDE\SODIUM CHLORIDE\SODIUM LACTATE
     Indication: End stage renal disease
     Dosage: 5 FILLS OF 3000ML, 1 LAST FILL OF 3000ML TOTAL: 21000ML, 1DAY TIME EXCHANGE OF 3000ML, 4 DWELL: 13HR
     Route: 033
     Dates: start: 20220217

REACTIONS (1)
  - Hydrocele [Not Recovered/Not Resolved]
